FAERS Safety Report 6818462-9 (Version None)
Quarter: 2010Q3

REPORT INFORMATION
  Report Type: 
  Country: None (occurrence: None)
  Receive Date: 20100706
  Receipt Date: 20080722
  Transmission Date: 20110219
  Serious: No
  Sender: FDA-Public Use
  Company Number: US-PFIZER INC-2008061648

PATIENT
  Sex: Male
  Weight: 79.38 kg

DRUGS (12)
  1. ZITHROMAX [Suspect]
     Indication: PNEUMONIA
     Route: 048
     Dates: start: 20080104, end: 20080108
  2. ACTONEL [Concomitant]
     Indication: OSTEOPOROSIS
  3. VITAMIN B [Concomitant]
     Indication: OSTEOPOROSIS
  4. CALCIUM CARBONATE [Concomitant]
     Indication: OSTEOPOROSIS
  5. WARFARIN SODIUM [Concomitant]
     Indication: ATRIAL FIBRILLATION
  6. TOPROL-XL [Concomitant]
     Indication: ATRIAL FIBRILLATION
  7. DIGOXIN [Concomitant]
     Indication: ATRIAL FIBRILLATION
  8. NASONEX [Concomitant]
     Indication: RHINORRHOEA
  9. ATROVENT [Concomitant]
     Indication: RHINORRHOEA
  10. PEPCID [Concomitant]
     Indication: DYSPEPSIA
  11. TYLENOL [Concomitant]
     Indication: ARTHRALGIA
  12. LUPRON [Concomitant]
     Indication: PROSTATE CANCER

REACTIONS (2)
  - DEAFNESS UNILATERAL [None]
  - SINUSITIS [None]
